FAERS Safety Report 9063235 (Version 1)
Quarter: 2013Q1

REPORT INFORMATION
  Report Type: Report from Study
  Country: US (occurrence: US)
  Receive Date: 20130129
  Receipt Date: 20130129
  Transmission Date: 20140127
  Serious: No
  Sender: FDA-Public Use
  Company Number: US-ABBOTT-12P-163-0951998-00

PATIENT
  Age: 51 Year
  Sex: Female

DRUGS (5)
  1. HUMIRA 40 MG/0.8 ML PEN [Suspect]
     Indication: CROHN^S DISEASE
     Dates: start: 200908
  2. PREVACID [Concomitant]
     Indication: DYSPEPSIA
  3. CLARITIN [Concomitant]
     Indication: HYPERSENSITIVITY
  4. BABY ASPIRIN [Concomitant]
     Indication: PROPHYLAXIS
  5. BABY ASPIRIN [Concomitant]
     Indication: CHEST PAIN

REACTIONS (2)
  - Anal fissure [Not Recovered/Not Resolved]
  - Anaemia [Not Recovered/Not Resolved]
